FAERS Safety Report 9606108 (Version 2)
Quarter: 2013Q4

REPORT INFORMATION
  Report Type: Spontaneous
  Country: US (occurrence: US)
  Receive Date: 20131008
  Receipt Date: 20131008
  Transmission Date: 20140711
  Serious: No
  Sender: FDA-Public Use
  Company Number: US-AMGEN-USASP2013040218

PATIENT
  Age: 57 Year
  Sex: Female
  Weight: 75.28 kg

DRUGS (6)
  1. PROLIA [Suspect]
     Indication: PRODUCT USED FOR UNKNOWN INDICATION
     Dosage: 60 UNK, Q6MO
     Dates: start: 20120217
  2. SYNTHROID [Concomitant]
  3. VIVELLE DOT [Concomitant]
  4. PREVACID [Concomitant]
  5. LIPITOR [Concomitant]
  6. VITAMIN D                          /00107901/ [Concomitant]
     Dosage: UNK

REACTIONS (5)
  - Nerve injury [Not Recovered/Not Resolved]
  - Dental caries [Recovered/Resolved]
  - Toothache [Recovered/Resolved]
  - Tooth abscess [Recovered/Resolved]
  - Sensitivity of teeth [Recovered/Resolved]
